FAERS Safety Report 6299422-6 (Version None)
Quarter: 2009Q3

REPORT INFORMATION
  Report Type: 
  Country: None (occurrence: None)
  Receive Date: 20090806
  Receipt Date: 20090730
  Transmission Date: 20100115
  Serious: Yes (Death, Hospitalization)
  Sender: FDA-Public Use
  Company Number: FR-AVENTIS-200912811FR

PATIENT
  Age: 81 Year
  Sex: Male

DRUGS (8)
  1. LASILIX FAIBLE [Suspect]
     Indication: DRUG USE FOR UNKNOWN INDICATION
     Route: 048
  2. KASKADIL [Suspect]
     Route: 042
     Dates: start: 20090316, end: 20090316
  3. VITAMIN K1 [Suspect]
     Route: 042
     Dates: start: 20090316, end: 20090316
  4. SINEMET [Suspect]
     Indication: DRUG USE FOR UNKNOWN INDICATION
     Route: 048
  5. SOTALOL HCL [Suspect]
     Indication: DRUG USE FOR UNKNOWN INDICATION
     Route: 048
  6. STABLON [Suspect]
     Indication: DRUG USE FOR UNKNOWN INDICATION
     Route: 048
  7. STALEVO 100 [Suspect]
     Indication: DRUG USE FOR UNKNOWN INDICATION
     Route: 048
  8. LERCAN [Suspect]
     Indication: DRUG USE FOR UNKNOWN INDICATION
     Route: 048

REACTIONS (4)
  - CEREBROVASCULAR ACCIDENT [None]
  - CONFUSIONAL STATE [None]
  - DISORIENTATION [None]
  - MONOPARESIS [None]
